FAERS Safety Report 24859032 (Version 1)
Quarter: 2025Q1

REPORT INFORMATION
  Report Type: Spontaneous
  Country: JP (occurrence: JP)
  Receive Date: 20250118
  Receipt Date: 20250118
  Transmission Date: 20250409
  Serious: Yes (Life-Threatening, Hospitalization)
  Sender: MACLEODS
  Company Number: JP-MLMSERVICE-20250106-PI331139-00132-1

PATIENT

DRUGS (10)
  1. LIDOCAINE [Suspect]
     Active Substance: LIDOCAINE
     Indication: Local anaesthesia
     Route: 061
  2. LIDOCAINE [Suspect]
     Active Substance: LIDOCAINE
     Route: 061
  3. EPINEPHRINE [Suspect]
     Active Substance: EPINEPHRINE
     Indication: Local anaesthesia
     Route: 061
  4. REMIFENTANIL [Concomitant]
     Active Substance: REMIFENTANIL
     Route: 065
  5. REMIFENTANIL [Concomitant]
     Active Substance: REMIFENTANIL
     Route: 065
  6. REMIMAZOLAM [Concomitant]
     Active Substance: REMIMAZOLAM
     Indication: General anaesthesia
     Route: 065
  7. REMIMAZOLAM [Concomitant]
     Active Substance: REMIMAZOLAM
     Route: 065
  8. ROCURONIUM [Concomitant]
     Active Substance: ROCURONIUM BROMIDE
     Indication: Neuromuscular blockade
     Route: 065
  9. ROCURONIUM [Concomitant]
     Active Substance: ROCURONIUM BROMIDE
     Route: 065
  10. FENTANYL [Concomitant]
     Active Substance: FENTANYL
     Indication: General anaesthesia
     Route: 065

REACTIONS (3)
  - Local anaesthetic systemic toxicity [Recovered/Resolved]
  - Electrocardiogram QRS complex prolonged [Recovered/Resolved]
  - Electrocardiogram QT prolonged [Recovered/Resolved]
